FAERS Safety Report 7499022-6 (Version None)
Quarter: 2011Q2

REPORT INFORMATION
  Report Type: 
  Country: None (occurrence: None)
  Receive Date: 20110524
  Receipt Date: 20110120
  Transmission Date: 20111010
  Serious: Yes (Hospitalization)
  Sender: FDA-Public Use
  Company Number: US-BAYER-200939489NA

PATIENT
  Age: 31 Year
  Sex: Female
  Weight: 62.585 kg

DRUGS (6)
  1. ZOFRAN [Concomitant]
     Indication: NAUSEA
     Dosage: UNK
     Dates: start: 20070101
  2. MORPHINE [Concomitant]
     Indication: NAUSEA
     Dosage: UNK
     Dates: start: 20070101
  3. YASMIN [Suspect]
     Indication: ORAL CONTRACEPTION
     Dosage: 1 CI (DAILY DOSE), QD, ORAL
     Route: 048
     Dates: start: 20060401, end: 20070201
  4. IMITREX [Concomitant]
  5. ACETAMINOPHEN AND TRAMADOL HCL [Concomitant]
  6. PHENERGAN HCL [Concomitant]

REACTIONS (12)
  - CEREBROVASCULAR ACCIDENT [None]
  - ISCHAEMIC CEREBRAL INFARCTION [None]
  - PHOTOPHOBIA [None]
  - BLINDNESS [None]
  - HEADACHE [None]
  - VISUAL FIELD DEFECT [None]
  - PAIN [None]
  - NAUSEA [None]
  - MIGRAINE [None]
  - VISION BLURRED [None]
  - ISCHAEMIC STROKE [None]
  - HYPERACUSIS [None]
